FAERS Safety Report 6121579-8 (Version None)
Quarter: 2009Q1

REPORT INFORMATION
  Report Type: 
  Country: None (occurrence: None)
  Receive Date: 20090313
  Receipt Date: 20090304
  Transmission Date: 20090719
  Serious: Yes (Other)
  Sender: FDA-Public Use
  Company Number: TRP_06111_2009

PATIENT
  Sex: Male
  Weight: 102.0593 kg

DRUGS (2)
  1. INFERGEN [Suspect]
     Indication: HEPATITIS C
     Dosage: 15 G QD SUBCUTANEOUS
     Route: 058
     Dates: end: 20090303
  2. RIBAVIRIN [Suspect]
     Indication: HEPATITIS C
     Dosage: DF
     Dates: end: 20090303

REACTIONS (3)
  - BACTERAEMIA [None]
  - LOWER RESPIRATORY TRACT INFECTION [None]
  - OSTEOMYELITIS BACTERIAL [None]
